FAERS Safety Report 16723590 (Version 1)
Quarter: 2019Q3

REPORT INFORMATION
  Report Type: Spontaneous
  Country: DE (occurrence: DE)
  Receive Date: 20190821
  Receipt Date: 20190821
  Transmission Date: 20191005
  Serious: Yes (Hospitalization)
  Sender: FDA-Public Use
  Company Number: DE-TEVA-2019-DE-1094465

PATIENT
  Age: 81 Year
  Sex: Female

DRUGS (14)
  1. LEVOTHYROXIN-NATRIUM [Concomitant]
     Active Substance: LEVOTHYROXINE SODIUM
     Dosage: 125 MG, 1-0-0-0
  2. METAMIZOL [Concomitant]
     Active Substance: METAMIZOLE SODIUM
     Dosage: NK MG, 4X30GTT IF NEEDED
  3. METOPROLOL. [Concomitant]
     Active Substance: METOPROLOL
     Dosage: 23.75 MG, 1-0-1-0
  4. EISEN-II-GLYCIN-SULFAT [Concomitant]
     Dosage: 50 MG, 1-0-0-0
  5. ATORVASTATIN [Concomitant]
     Active Substance: ATORVASTATIN
     Dosage: 40 MG, 0-0-1-0
  6. FOLS?URE [Concomitant]
     Dosage: 5 MG, 1-0-0-0, ONCE A WEEK
  7. PREDNISOLON [Suspect]
     Active Substance: PREDNISOLONE
     Dosage: 5 MG, 1-0-0-0
     Route: 065
  8. PANTOPRAZOL [Concomitant]
     Active Substance: PANTOPRAZOLE SODIUM
     Dosage: 40 MG, 1-0-0-0
  9. COLECALCIFEROL [Concomitant]
     Active Substance: CHOLECALCIFEROL
     Dosage: 20000 IE, 1-0-0-0
  10. METFORMIN [Concomitant]
     Active Substance: METFORMIN HYDROCHLORIDE
     Dosage: 1000 MG, 1-0-1-0
  11. METHOTREXAT [Suspect]
     Active Substance: METHOTREXATE
     Dosage: 10 MG, 1-0-0-0
     Route: 065
  12. ADALIMUMAB [Suspect]
     Active Substance: ADALIMUMAB
     Dosage: 40 MG, 1-0-0-0, EVERY 14 D
     Route: 058
  13. ACETYLSALICYLS?URE [Concomitant]
     Active Substance: ASPIRIN
     Dosage: 100 MG, 1-0-0-0
  14. TROSPIUM [Concomitant]
     Active Substance: TROSPIUM
     Dosage: 15 MG, 1-0-1-0

REACTIONS (5)
  - Oral pain [Unknown]
  - Lip swelling [Unknown]
  - General physical health deterioration [Unknown]
  - Dehydration [Unknown]
  - Face oedema [Unknown]
